FAERS Safety Report 9403522 (Version 1)
Quarter: 2013Q3

REPORT INFORMATION
  Report Type: Spontaneous
  Country: US (occurrence: US)
  Receive Date: 20130716
  Receipt Date: 20130716
  Transmission Date: 20140515
  Serious: No
  Sender: FDA-Public Use
  Company Number: US-B.I. PHARMACEUTICALS,INC./RIDGEFIELD-2013-BI-20257BP

PATIENT
  Age: 74 Year
  Sex: Female

DRUGS (10)
  1. COMBIVENT [Suspect]
     Indication: CHRONIC OBSTRUCTIVE PULMONARY DISEASE
     Dosage: STRENGTH: 20 MCG / 100 MCG; DAILY DOSE: 160 MCG/ 800 MCG
     Route: 055
     Dates: start: 20130703
  2. SPIRIVA [Suspect]
     Indication: CHRONIC OBSTRUCTIVE PULMONARY DISEASE
     Dosage: 18 MCG
     Route: 055
     Dates: end: 201305
  3. DILTIAZEM [Concomitant]
     Dosage: 240 MG
     Route: 048
  4. MELOXICAM [Concomitant]
     Indication: BACK PAIN
     Route: 048
  5. LISINOPRIL [Concomitant]
     Route: 048
  6. HYDROCHLOROTHIAZIDE [Concomitant]
     Dosage: 25 MG
     Route: 048
  7. VITAMIN D [Concomitant]
     Route: 048
  8. ALBUTEROL NEBULIZER [Concomitant]
     Route: 055
  9. SYMBICORT [Concomitant]
     Route: 055
  10. CLONIDINE [Concomitant]
     Indication: HYPERTENSION
     Route: 048

REACTIONS (4)
  - Drug ineffective [Not Recovered/Not Resolved]
  - Dry mouth [Recovered/Resolved]
  - Cough [Not Recovered/Not Resolved]
  - Prescribed overdose [Not Recovered/Not Resolved]
